FAERS Safety Report 4618670-1 (Version None)
Quarter: 2005Q2

REPORT INFORMATION
  Report Type: 
  Country: None (occurrence: None)
  Receive Date: 20050311
  Receipt Date: 20041108
  Transmission Date: 20051028
  Serious: No
  Sender: FDA-Public Use
  Company Number: 2004-BP-09765BP

PATIENT
  Age: 56 Year
  Sex: Female
  Weight: 56.36 kg

DRUGS (8)
  1. SPIRIVA [Suspect]
     Indication: CHRONIC OBSTRUCTIVE PULMONARY DISEASE
     Dosage: 18 MCG (18 MCG, 1 IN 1 D), IH
     Route: 055
     Dates: start: 20040908, end: 20041104
  2. ADVAIR DISKUS 500/50 [Concomitant]
  3. ALBUTEROL [Concomitant]
  4. SYNTHROID [Concomitant]
  5. FOSAMAX [Concomitant]
  6. RHINOCORT [Concomitant]
  7. OSCAL (CALCIUM CARBONATE) [Concomitant]
  8. ATROVENT [Concomitant]

REACTIONS (4)
  - COUGH [None]
  - DRY MOUTH [None]
  - LUNG DISORDER [None]
  - SECRETION DISCHARGE [None]
